FAERS Safety Report 9410489 (Version 1)
Quarter: 2013Q3

REPORT INFORMATION
  Report Type: Spontaneous
  Country: US (occurrence: None)
  Receive Date: 20130718
  Receipt Date: 20130718
  Transmission Date: 20140515
  Serious: Yes (Hospitalization)
  Sender: FDA-Public Use
  Company Number: None

PATIENT
  Age: 56 Year
  Sex: Male

DRUGS (4)
  1. CRESTOR (ROSUVASTATIN) [Suspect]
  2. TADALOFIL [Concomitant]
  3. LORZEPAM [Concomitant]
  4. TRAZODONE [Concomitant]

REACTIONS (3)
  - Rhabdomyolysis [None]
  - Metabolic acidosis [None]
  - Renal failure acute [None]
